FAERS Safety Report 16291243 (Version 1)
Quarter: 2019Q2

REPORT INFORMATION
  Report Type: Report from Study
  Country: GB (occurrence: GB)
  Receive Date: 20190509
  Receipt Date: 20190509
  Transmission Date: 20190711
  Serious: Yes (Other)
  Sender: FDA-Public Use
  Company Number: GB-MYLANLABS-2017M1055485

PATIENT
  Age: 34 Year
  Sex: Male

DRUGS (8)
  1. AZATHIOPRINE. [Suspect]
     Active Substance: AZATHIOPRINE
     Dosage: 50 MILLIGRAM
     Route: 048
  2. AZATHIOPRINE. [Suspect]
     Active Substance: AZATHIOPRINE
     Indication: INFLAMMATORY BOWEL DISEASE
     Dosage: 50 MG, UNK
     Route: 048
  3. AZATHIOPRINE. [Suspect]
     Active Substance: AZATHIOPRINE
     Dosage: UNK
     Route: 048
     Dates: start: 20160607
  4. REMSIMA [Suspect]
     Active Substance: INFLIXIMAB
     Dosage: 5MG/KG (1 IN EVERY 6 WEEKS)
     Route: 042
     Dates: start: 20170324, end: 20170324
  5. REMSIMA [Suspect]
     Active Substance: INFLIXIMAB
     Dosage: ONCE EVERY 6 WEEKS
     Route: 042
     Dates: start: 20170210, end: 20170324
  6. INFLECTRA                          /01445601/ [Suspect]
     Active Substance: INFLIXIMAB
     Indication: CROHN^S DISEASE
     Dosage: , EVERY 8 WEEK
     Route: 042
     Dates: start: 20160610
  7. AZATHIOPRINE. [Suspect]
     Active Substance: AZATHIOPRINE
     Indication: DECREASED IMMUNE RESPONSIVENESS
     Dosage: 100 MILLIGRAM, QD
     Route: 048
  8. REMSIMA [Suspect]
     Active Substance: INFLIXIMAB
     Indication: CROHN^S DISEASE
     Dosage: 5MG/KG 1 IN 6 WEEKS
     Route: 042
     Dates: start: 20170210, end: 20170210

REACTIONS (3)
  - Inappropriate schedule of product administration [Unknown]
  - Influenza like illness [Unknown]
  - Alanine aminotransferase increased [Not Recovered/Not Resolved]

NARRATIVE: CASE EVENT DATE: 20170210
